FAERS Safety Report 15483683 (Version 3)
Quarter: 2018Q4

REPORT INFORMATION
  Report Type: Spontaneous
  Country: FR (occurrence: FR)
  Receive Date: 20181010
  Receipt Date: 20181017
  Transmission Date: 20190205
  Serious: Yes (Hospitalization, Other)
  Sender: FDA-Public Use
  Company Number: FR-PFIZER INC-2018408509

PATIENT
  Age: 65 Year
  Sex: Male
  Weight: 67.5 kg

DRUGS (9)
  1. SERESTA [Suspect]
     Active Substance: OXAZEPAM
     Indication: INITIAL INSOMNIA
     Dosage: UNK UNK, QD
     Route: 048
  2. CEFOTAXIME [Suspect]
     Active Substance: CEFOTAXIME SODIUM
     Indication: PERITONITIS
     Dosage: UNK
     Route: 065
     Dates: start: 20180727, end: 20180803
  3. ALDACTONE [Suspect]
     Active Substance: SPIRONOLACTONE
     Indication: ASCITES
     Dosage: UNK UNK, QD
     Route: 048
     Dates: end: 20180808
  4. SERETIDE [Suspect]
     Active Substance: FLUTICASONE PROPIONATE\SALMETEROL XINAFOATE
     Dosage: UNK UNK, QD
     Route: 055
  5. PANTOPRAZOLE [Suspect]
     Active Substance: PANTOPRAZOLE
     Dosage: 1 DF, QD
     Route: 048
  6. SPIRIVA [Suspect]
     Active Substance: TIOTROPIUM BROMIDE MONOHYDRATE
     Dosage: UNK UNK, QD
     Route: 055
  7. DUPHALAC [Suspect]
     Active Substance: LACTULOSE
     Indication: CONSTIPATION
     Dosage: UNK UNK, QD
     Route: 048
  8. PROPRANOLOL [Suspect]
     Active Substance: PROPRANOLOL HYDROCHLORIDE
     Indication: VARICES OESOPHAGEAL
     Dosage: UNK UNK, QD
     Route: 048
  9. NEO-MERCAZOLE [Suspect]
     Active Substance: CARBIMAZOLE
     Indication: HYPERTHYROIDISM
     Dosage: UNK UNK, QD
     Route: 048

REACTIONS (1)
  - Hepatorenal syndrome [Not Recovered/Not Resolved]

NARRATIVE: CASE EVENT DATE: 20180806
